FAERS Safety Report 19561100 (Version 1)
Quarter: 2021Q3

REPORT INFORMATION
  Report Type: Spontaneous
  Country: US (occurrence: US)
  Receive Date: 20210716
  Receipt Date: 20210716
  Transmission Date: 20211014
  Serious: No
  Sender: FDA-Public Use
  Company Number: US-LEO PHARMA-337292

PATIENT
  Sex: Female

DRUGS (1)
  1. AZELEX [Suspect]
     Active Substance: AZELAIC ACID
     Indication: ROSACEA
     Route: 061

REACTIONS (4)
  - Product use in unapproved indication [Unknown]
  - Product storage error [Unknown]
  - Off label use [Unknown]
  - Rosacea [Not Recovered/Not Resolved]
